FAERS Safety Report 10204672 (Version 1)
Quarter: 2014Q2

REPORT INFORMATION
  Report Type: Spontaneous
  Country: US (occurrence: US)
  Receive Date: 20140529
  Receipt Date: 20140529
  Transmission Date: 20141212
  Serious: Yes (Hospitalization)
  Sender: FDA-Public Use
  Company Number: US-GLAXOSMITHKLINE-A1074038A

PATIENT
  Age: 91 Year
  Sex: Male

DRUGS (2)
  1. ADVAIR [Suspect]
     Indication: ASTHMA
     Dosage: 1PUFF TWICE PER DAY
     Route: 055
     Dates: start: 2004
  2. UNSPECIFIED MEDICATION [Concomitant]

REACTIONS (1)
  - Rectal haemorrhage [Recovering/Resolving]
